FAERS Safety Report 5900918-4 (Version None)
Quarter: 2008Q3

REPORT INFORMATION
  Report Type: 
  Country: None (occurrence: None)
  Receive Date: 20080929
  Receipt Date: 20080919
  Transmission Date: 20090109
  Serious: Yes (Hospitalization)
  Sender: FDA-Public Use
  Company Number: PHHY2008AU22145

PATIENT

DRUGS (1)
  1. RITALIN [Suspect]
     Route: 048

REACTIONS (2)
  - DRUG TOXICITY [None]
  - MALAISE [None]
